FAERS Safety Report 7323617-3 (Version None)
Quarter: 2011Q1

REPORT INFORMATION
  Report Type: 
  Country: None (occurrence: None)
  Receive Date: 20110301
  Receipt Date: 20110221
  Transmission Date: 20110831
  Serious: Yes (Other)
  Sender: FDA-Public Use
  Company Number: US-B.I. PHARMACEUTICALS,INC./RIDGEFIELD-2011-BP-00711BP

PATIENT
  Sex: Male

DRUGS (15)
  1. PACERONE [Concomitant]
     Indication: ATRIAL FIBRILLATION
     Dosage: 200 MG
  2. LISINOPRIL [Concomitant]
     Indication: HYPERTENSION
     Dosage: 20 MG
  3. IRON [Concomitant]
     Indication: PROPHYLAXIS
     Dosage: 29 MG
  4. COREG CR [Concomitant]
     Indication: HYPERTENSION
  5. MULTIVITAMIN [Concomitant]
     Indication: PROPHYLAXIS
  6. LORANTIDINE [Concomitant]
     Indication: MULTIPLE ALLERGIES
     Dosage: 10 MG
  7. DIGOXIN [Concomitant]
     Indication: ATRIAL FIBRILLATION
     Dosage: 0.125 MG
  8. BENADRYL [Concomitant]
     Indication: NASAL CONGESTION
     Dosage: 50 MG
  9. CALCIUM [Concomitant]
     Indication: PROPHYLAXIS
  10. INSPRA [Concomitant]
     Indication: HYPERTENSION
     Dosage: 25 MG
  11. FUROSEMIDE [Concomitant]
     Indication: FLUID RETENTION
  12. C-PAP [Concomitant]
     Indication: SLEEP APNOEA SYNDROME
  13. PRADAXA [Suspect]
     Indication: ATRIAL FIBRILLATION
     Dosage: 300 MG
     Route: 048
     Dates: start: 20101210, end: 20101219
  14. VITAMIN B-12 [Concomitant]
     Indication: PROPHYLAXIS
  15. OMEPRAZOLE [Concomitant]
     Indication: GASTROOESOPHAGEAL REFLUX DISEASE
     Dosage: 40 MG

REACTIONS (1)
  - ATRIAL THROMBOSIS [None]
